FAERS Safety Report 4579117-7 (Version None)
Quarter: 2005Q1

REPORT INFORMATION
  Report Type: 
  Country: None (occurrence: None)
  Receive Date: 20050121
  Receipt Date: 20031216
  Transmission Date: 20050727
  Serious: Yes (Hospitalization)
  Sender: FDA-Public Use
  Company Number: STA-AE-03-MTX-211

PATIENT
  Age: 60 Year
  Sex: Male

DRUGS (5)
  1. METHOTREXATE [Suspect]
     Indication: RHEUMATOID ARTHRITIS
     Dosage: 12.5 MG 1X PER 1 WK, ORAL
     Route: 048
     Dates: start: 20030129, end: 20031113
  2. ENBREL [Suspect]
     Indication: RHEUMATOID ARTHRITIS
     Dosage: 25 MG 2X PER 1 WK, SC
     Route: 058
     Dates: start: 20030320, end: 20031113
  3. PREDNISONE TAB [Suspect]
     Indication: RHEUMATOID ARTHRITIS
     Dosage: 10 MG 1X PER 1 DAY, ORAL
     Route: 048
     Dates: start: 20030101, end: 20031101
  4. PREDNISONE TAB [Suspect]
     Indication: RHEUMATOID ARTHRITIS
     Dosage: 20 MG 1X PER 1 DAY, ORAL
     Route: 048
     Dates: start: 20031101, end: 20031216
  5. PREDNISONE TAB [Suspect]
     Indication: RHEUMATOID ARTHRITIS
     Dosage: 10 MG 1X PER 1 DAY, ORAL
     Route: 048
     Dates: start: 20031217

REACTIONS (11)
  - ASTHENIA [None]
  - CHEST PAIN [None]
  - CHILLS [None]
  - COUGH [None]
  - DYSPNOEA [None]
  - FATIGUE [None]
  - LEUKOCYTOSIS [None]
  - PNEUMONIA [None]
  - PNEUMONITIS [None]
  - PYREXIA [None]
  - WHITE BLOOD CELL COUNT INCREASED [None]
